FAERS Safety Report 21364237 (Version 1)
Quarter: 2022Q3

REPORT INFORMATION
  Report Type: Spontaneous
  Country: US (occurrence: None)
  Receive Date: 20220921
  Receipt Date: 20220921
  Transmission Date: 20221027
  Serious: Yes (unspecified)
  Sender: FDA-Public Use
  Company Number: None

PATIENT
  Age: 35 Year
  Sex: Female
  Weight: 64.41 kg

DRUGS (5)
  1. PARAGARD T 380A [Suspect]
     Active Substance: COPPER
  2. UNSPECIFIED INGREDIENT [Suspect]
     Active Substance: UNSPECIFIED INGREDIENT
  3. PLEXION CLEANSER [Concomitant]
     Active Substance: SULFACETAMIDE SODIUM\SULFUR
  4. Plexion cream [Concomitant]
  5. AZELAIC ACID [Concomitant]
     Active Substance: AZELAIC ACID

REACTIONS (4)
  - Uterine pain [None]
  - Device dislocation [None]
  - Complication of device removal [None]
  - Embedded device [None]

NARRATIVE: CASE EVENT DATE: 20220818
